FAERS Safety Report 25154022 (Version 1)
Quarter: 2025Q2

REPORT INFORMATION
  Report Type: Spontaneous
  Country: FR (occurrence: FR)
  Receive Date: 20250403
  Receipt Date: 20250403
  Transmission Date: 20250716
  Serious: Yes (Other)
  Sender: ALEXION PHARMACEUTICALS
  Company Number: FR-AstraZeneca-CH-00836826A

PATIENT

DRUGS (2)
  1. TREMELIMUMAB [Suspect]
     Active Substance: TREMELIMUMAB
     Route: 065
  2. DURVALUMAB [Suspect]
     Active Substance: DURVALUMAB
     Route: 065

REACTIONS (1)
  - Hepatotoxicity [Unknown]
